FAERS Safety Report 20073088 (Version 1)
Quarter: 2021Q4

REPORT INFORMATION
  Report Type: Spontaneous
  Country: US (occurrence: US)
  Receive Date: 20211116
  Receipt Date: 20211116
  Transmission Date: 20220303
  Serious: Yes (Other)
  Sender: FDA-Public Use
  Company Number: US-AMGEN-USASP2021174376

PATIENT
  Sex: Female

DRUGS (1)
  1. XGEVA [Suspect]
     Active Substance: DENOSUMAB
     Indication: Breast cancer metastatic
     Dosage: UNK UNK, Q3MO
     Route: 065

REACTIONS (3)
  - Swelling face [Not Recovered/Not Resolved]
  - Dysphagia [Not Recovered/Not Resolved]
  - Pain in jaw [Not Recovered/Not Resolved]

NARRATIVE: CASE EVENT DATE: 20210301
